FAERS Safety Report 24536027 (Version 1)
Quarter: 2024Q4

REPORT INFORMATION
  Report Type: Report from Study
  Country: US (occurrence: US)
  Receive Date: 20241022
  Receipt Date: 20241022
  Transmission Date: 20250114
  Serious: Yes (Other)
  Sender: JAZZ
  Company Number: US-JAZZ PHARMACEUTICALS-2024-US-014065

PATIENT
  Age: 47 Year
  Sex: Female

DRUGS (6)
  1. XYWAV [Suspect]
     Active Substance: CALCIUM OXYBATE\MAGNESIUM OXYBATE\POTASSIUM OXYBATE\SODIUM OXYBATE
     Indication: Narcolepsy
     Dosage: 3.75 GRAM, BID
  2. XYWAV [Suspect]
     Active Substance: CALCIUM OXYBATE\MAGNESIUM OXYBATE\POTASSIUM OXYBATE\SODIUM OXYBATE
     Indication: Cataplexy
  3. XYWAV [Suspect]
     Active Substance: CALCIUM OXYBATE\MAGNESIUM OXYBATE\POTASSIUM OXYBATE\SODIUM OXYBATE
     Indication: Somnolence
  4. GABAPENTIN [Suspect]
     Active Substance: GABAPENTIN
     Indication: Hysterectomy
     Dosage: UNK
     Dates: start: 20240902, end: 20240902
  5. GABAPENTIN [Suspect]
     Active Substance: GABAPENTIN
     Indication: Neuralgia
  6. ELDERBERRY EXTRACT [Concomitant]
     Indication: Product used for unknown indication
     Dosage: UNK
     Dates: start: 20240504

REACTIONS (7)
  - Hysterectomy [Unknown]
  - Neuralgia [Unknown]
  - Dizziness [Unknown]
  - Euphoric mood [Unknown]
  - Onychomycosis [Unknown]
  - Feeling abnormal [Unknown]
  - Dermatitis contact [Unknown]

NARRATIVE: CASE EVENT DATE: 20240709
